FAERS Safety Report 5062828-7 (Version None)
Quarter: 2006Q3

REPORT INFORMATION
  Report Type: 
  Country: None (occurrence: None)
  Receive Date: 20060726
  Receipt Date: 20060410
  Transmission Date: 20061208
  Serious: Yes (Hospitalization)
  Sender: FDA-Public Use
  Company Number: US-MERCK-0604USA01416

PATIENT
  Age: 36 Year
  Sex: Female
  Weight: 65 kg

DRUGS (6)
  1. VYTORIN [Suspect]
     Indication: HYPERTRIGLYCERIDAEMIA
     Route: 048
     Dates: start: 20051101, end: 20060210
  2. VYTORIN [Suspect]
     Route: 048
     Dates: end: 20051101
  3. VYTORIN [Suspect]
     Indication: BLOOD CHOLESTEROL INCREASED
     Route: 048
     Dates: start: 20051101, end: 20060210
  4. VYTORIN [Suspect]
     Route: 048
     Dates: end: 20051101
  5. ZETIA [Suspect]
     Route: 048
     Dates: start: 20060201
  6. METFORMIN [Concomitant]
     Route: 065

REACTIONS (6)
  - BLOOD CREATINE PHOSPHOKINASE INCREASED [None]
  - BLOOD GLUCOSE INCREASED [None]
  - CORONARY ARTERY DISEASE [None]
  - FLUSHING [None]
  - MYALGIA [None]
  - VOMITING [None]
